FAERS Safety Report 14368190 (Version 2)
Quarter: 2018Q1

REPORT INFORMATION
  Report Type: Spontaneous
  Country: US (occurrence: US)
  Receive Date: 20180109
  Receipt Date: 20180110
  Transmission Date: 20180509
  Serious: No
  Sender: FDA-Public Use
  Company Number: US-PFIZER INC-2018009543

PATIENT
  Age: 8 Year
  Sex: Male

DRUGS (1)
  1. CORTEF [Suspect]
     Active Substance: HYDROCORTISONE
     Dosage: UNK UNK, 3X/DAY

REACTIONS (3)
  - Pain [Unknown]
  - Neuropathy peripheral [Unknown]
  - Muscle spasms [Recovered/Resolved]
